FAERS Safety Report 19769349 (Version 1)
Quarter: 2021Q3

REPORT INFORMATION
  Report Type: Spontaneous
  Country: FR (occurrence: FR)
  Receive Date: 20210831
  Receipt Date: 20210831
  Transmission Date: 20211014
  Serious: Yes (Other)
  Sender: FDA-Public Use
  Company Number: FR-MYLANLABS-2021M1056714

PATIENT
  Sex: Female

DRUGS (1)
  1. BUPIVACAINE MYLAN [Suspect]
     Active Substance: BUPIVACAINE
     Indication: PRODUCT USED FOR UNKNOWN INDICATION
     Dosage: UNK

REACTIONS (2)
  - Maternal exposure during delivery [Unknown]
  - Drug ineffective [Unknown]

NARRATIVE: CASE EVENT DATE: 202108
